FAERS Safety Report 23352348 (Version 3)
Quarter: 2024Q1

REPORT INFORMATION
  Report Type: Spontaneous
  Country: IL (occurrence: IL)
  Receive Date: 20231229
  Receipt Date: 20240212
  Transmission Date: 20240410
  Serious: Yes (Death, Other)
  Sender: FDA-Public Use
  Company Number: IL-SERVIER-S23014829

PATIENT
  Age: 72 Year
  Sex: Female

DRUGS (1)
  1. LONSURF [Suspect]
     Active Substance: TIPIRACIL HYDROCHLORIDE\TRIFLURIDINE
     Indication: Colorectal cancer metastatic
     Dosage: UNK, ON DAYS 1-5 AND 8-12 OF EACH 28-DAY CYCLE
     Route: 048

REACTIONS (7)
  - Sepsis [Fatal]
  - Pancytopenia [Unknown]
  - Hepatic function abnormal [Unknown]
  - Blood creatinine abnormal [Unknown]
  - Blood bilirubin abnormal [Unknown]
  - Infected fistula [Unknown]
  - Immunodeficiency [Unknown]
